FAERS Safety Report 21592017 (Version 2)
Quarter: 2023Q1

REPORT INFORMATION
  Report Type: Report from Study
  Country: US (occurrence: US)
  Receive Date: 20221114
  Receipt Date: 20230313
  Transmission Date: 20230417
  Serious: No
  Sender: FDA-Public Use
  Company Number: US-ABBVIE-4191873

PATIENT
  Age: 50 Year
  Sex: Male
  Weight: 113.39 kg

DRUGS (4)
  1. SKYRIZI [Suspect]
     Active Substance: RISANKIZUMAB-RZAA
     Indication: Psoriasis
     Dosage: 4TH SHOT
     Route: 058
     Dates: start: 20221108
  2. SKYRIZI [Suspect]
     Active Substance: RISANKIZUMAB-RZAA
     Dosage: 1ST SHOT
     Route: 058
     Dates: start: 20220420
  3. SKYRIZI [Suspect]
     Active Substance: RISANKIZUMAB-RZAA
     Dosage: 2ND SHOT
     Route: 058
     Dates: start: 20220517
  4. SKYRIZI [Suspect]
     Active Substance: RISANKIZUMAB-RZAA
     Dosage: 3RD SHOT
     Route: 058
     Dates: start: 20220809

REACTIONS (4)
  - Therapeutic response shortened [Unknown]
  - Psoriasis [Unknown]
  - Psoriasis [Recovered/Resolved]
  - Psoriasis [Recovered/Resolved]

NARRATIVE: CASE EVENT DATE: 20220501
